FAERS Safety Report 20202303 (Version 1)
Quarter: 2021Q4

REPORT INFORMATION
  Report Type: Report from Study
  Country: US (occurrence: US)
  Receive Date: 20211217
  Receipt Date: 20211217
  Transmission Date: 20220303
  Serious: Yes (Hospitalization)
  Sender: FDA-Public Use
  Company Number: US-TAKEDA-2021TUS078392

PATIENT
  Sex: Female

DRUGS (1)
  1. LANADELUMAB [Suspect]
     Active Substance: LANADELUMAB
     Indication: Product used for unknown indication
     Dosage: 300 MILLIGRAM, Q2WEEKS
     Route: 058

REACTIONS (3)
  - Staphylococcal infection [Recovering/Resolving]
  - Localised infection [Recovering/Resolving]
  - Hereditary angioedema [Recovering/Resolving]
